FAERS Safety Report 10363034 (Version 1)
Quarter: 2014Q1

REPORT INFORMATION
  Report Type: Spontaneous
  Country: US (occurrence: None)
  Receive Date: 20140306
  Receipt Date: 20140306
  Transmission Date: 20141002
  Serious: Yes (Other)
  Sender: FDA-Public Use
  Company Number: 163-21880-13074035

PATIENT
  Age: 63 Year
  Sex: Male

DRUGS (5)
  1. REVLIMID [Suspect]
     Indication: CHRONIC LYMPHOCYTIC LEUKAEMIA
     Dosage: 10 MG, 21 IN 28 D, PO
     Route: 048
     Dates: start: 20130629, end: 20130719
  2. VALTREX (VALACICLOVIR HYDROCHLORIDE) (UNKNOWN) [Concomitant]
  3. MAXIDE (DYAZIDE) (UNKNOWN) [Concomitant]
  4. DANAZOL (DANAZOL) (UNKNOWN) [Concomitant]
  5. ALLOPURINOL(ALLOPURINOL) (UNKNOWN) [Concomitant]

REACTIONS (2)
  - Platelet count decreased [None]
  - Epistaxis [None]
